FAERS Safety Report 5334811-5 (Version None)
Quarter: 2007Q2

REPORT INFORMATION
  Report Type: 
  Country: None (occurrence: None)
  Receive Date: 20070525
  Receipt Date: 20070518
  Transmission Date: 20071010
  Serious: Yes (Other)
  Sender: FDA-Public Use
  Company Number: US-GENENTECH-240787

PATIENT
  Sex: Female
  Weight: 53.515 kg

DRUGS (2)
  1. XOLAIR [Suspect]
     Indication: ASTHMA
     Dosage: 150 MG, UNK
     Route: 058
     Dates: start: 20070327, end: 20070423
  2. XOLAIR [Suspect]
     Indication: HYPERSENSITIVITY

REACTIONS (2)
  - HYPERSENSITIVITY [None]
  - WHEEZING [None]
